FAERS Safety Report 8148065-8 (Version None)
Quarter: 2012Q1

REPORT INFORMATION
  Report Type: 
  Country: None (occurrence: None)
  Receive Date: 20120218
  Receipt Date: 20110418
  Transmission Date: 20120608
  Serious: No
  Sender: FDA-Public Use
  Company Number: US-ALLERGAN-1105415US

PATIENT
  Sex: Female

DRUGS (1)
  1. BOTOX COSMETIC [Suspect]
     Indication: SKIN WRINKLING
     Dosage: 37.5 UNITS, SINGLE
     Route: 030
     Dates: start: 20110201, end: 20110201

REACTIONS (8)
  - HEADACHE [None]
  - NAUSEA [None]
  - PERIORBITAL OEDEMA [None]
  - EYELID SENSORY DISORDER [None]
  - FEELING ABNORMAL [None]
  - SKIN WRINKLING [None]
  - EYE PAIN [None]
  - VISION BLURRED [None]
